FAERS Safety Report 20736961 (Version 3)
Quarter: 2022Q2

REPORT INFORMATION
  Report Type: Report from Study
  Country: CZ (occurrence: None)
  Receive Date: 20220421
  Receipt Date: 20220504
  Transmission Date: 20220721
  Serious: Yes (Hospitalization)
  Sender: FDA-Public Use
  Company Number: CZ-ROCHE-3078323

PATIENT
  Age: 69 Year
  Sex: Female
  Weight: 65.8 kg

DRUGS (7)
  1. TIRAGOLUMAB [Suspect]
     Active Substance: TIRAGOLUMAB
     Indication: Squamous cell carcinoma of head and neck
     Dosage: ON 01/APR/2022, THE PATIENT HAD MOST RECENT DOSE OF 600 MG TIRAGOLUMAB.
     Route: 042
     Dates: start: 20220218
  2. ATEZOLIZUMAB [Suspect]
     Active Substance: ATEZOLIZUMAB
     Indication: Squamous cell carcinoma of head and neck
     Dosage: ON 01/APR/2022, THE PATIENT HAD MOST RECENT DOSE (1200 MG) OF ATEZOLIZUMAB.
     Route: 041
     Dates: start: 20220218
  3. LOZAP [Concomitant]
     Indication: Hypertension
     Route: 048
     Dates: start: 2012
  4. METOPROLOL [Concomitant]
     Active Substance: METOPROLOL
     Indication: Hypertension
     Route: 048
     Dates: start: 2012
  5. MODURETIC 5-50 [Concomitant]
     Active Substance: AMILORIDE HYDROCHLORIDE\HYDROCHLOROTHIAZIDE
     Indication: Hypertension
     Route: 048
     Dates: start: 2012
  6. CALCIUM PANTOTHENATE [Concomitant]
     Active Substance: CALCIUM PANTOTHENATE
     Route: 061
     Dates: start: 20220322
  7. AESCIN TEVA (CZECH REPUBLIC) [Concomitant]
     Route: 048
     Dates: start: 20220314

REACTIONS (1)
  - Coagulopathy [Recovered/Resolved]

NARRATIVE: CASE EVENT DATE: 20220414
